FAERS Safety Report 18248357 (Version 3)
Quarter: 2020Q4

REPORT INFORMATION
  Report Type: Report from Study
  Country: IL (occurrence: IL)
  Receive Date: 20200909
  Receipt Date: 20201013
  Transmission Date: 20210113
  Serious: Yes (Hospitalization)
  Sender: FDA-Public Use
  Company Number: IL-ELI_LILLY_AND_COMPANY-IL202009002307

PATIENT
  Age: 69 Year
  Sex: Female

DRUGS (3)
  1. FORTEO [Suspect]
     Active Substance: TERIPARATIDE
     Indication: OSTEOPOROSIS
     Dosage: 20 UG, DAILY
     Route: 065
     Dates: start: 20200705
  2. FORTEO [Suspect]
     Active Substance: TERIPARATIDE
     Dosage: 20 UG, DAILY
     Route: 065
     Dates: end: 20200902
  3. ACTONEL [Concomitant]
     Active Substance: RISEDRONATE SODIUM
     Indication: PRODUCT USED FOR UNKNOWN INDICATION
     Dosage: UNK

REACTIONS (16)
  - Vein rupture [Unknown]
  - Muscle spasms [Recovered/Resolved]
  - Haemoglobin decreased [Unknown]
  - Pruritus [Unknown]
  - Paraesthesia [Recovered/Resolved]
  - Paraesthesia oral [Recovered/Resolved]
  - Peripheral swelling [Recovering/Resolving]
  - Pain in extremity [Recovered/Resolved]
  - Scratch [Unknown]
  - Renal pain [Unknown]
  - Glossodynia [Unknown]
  - Arthralgia [Recovered/Resolved]
  - Pruritus [Recovered/Resolved]
  - Illness [Unknown]
  - Skin haemorrhage [Unknown]
  - Tongue ulceration [Recovered/Resolved]

NARRATIVE: CASE EVENT DATE: 20200705
